FAERS Safety Report 6754022-6 (Version None)
Quarter: 2010Q2

REPORT INFORMATION
  Report Type: 
  Country: None (occurrence: None)
  Receive Date: 20100603
  Receipt Date: 20100526
  Transmission Date: 20101027
  Serious: Yes (Hospitalization)
  Sender: FDA-Public Use
  Company Number: B0658223A

PATIENT
  Sex: Female

DRUGS (7)
  1. AUGMENTIN '125' [Suspect]
     Indication: DRUG USE FOR UNKNOWN INDICATION
     Route: 065
     Dates: start: 20100518, end: 20100525
  2. AMOXICILLIN AND CLAVULANATE POTASSIUM [Suspect]
     Indication: INFECTION PROPHYLAXIS
     Dosage: 2G PER DAY
     Route: 048
     Dates: start: 20100525
  3. CORDARONE [Concomitant]
     Route: 065
  4. IRBESARTAN [Concomitant]
     Route: 065
  5. TRIFLUCAN [Concomitant]
     Route: 065
  6. POTASSIUM [Concomitant]
     Route: 065
  7. ANTICOAGULANT [Concomitant]
     Route: 065

REACTIONS (8)
  - ANAEMIA [None]
  - DECREASED APPETITE [None]
  - FAECES DISCOLOURED [None]
  - FATIGUE [None]
  - GASTROINTESTINAL PAIN [None]
  - PHARYNGEAL HAEMORRHAGE [None]
  - RED BLOOD CELL COUNT DECREASED [None]
  - WHITE BLOOD CELL COUNT DECREASED [None]
